FAERS Safety Report 8058249-5 (Version None)
Quarter: 2012Q1

REPORT INFORMATION
  Report Type: 
  Country: None (occurrence: None)
  Receive Date: 20120120
  Receipt Date: 20120117
  Transmission Date: 20120608
  Serious: Yes (Hospitalization)
  Sender: FDA-Public Use
  Company Number: DE-BAYER-2012-005491

PATIENT

DRUGS (2)
  1. DACARBAZINE [Suspect]
     Indication: METASTATIC MALIGNANT MELANOMA
  2. CYTOKINES AND IMMUNOMODULATORS [Suspect]
     Indication: METASTATIC MALIGNANT MELANOMA
     Dosage: 1000 MG/M2, UNK

REACTIONS (1)
  - CARDIOVASCULAR DISORDER [None]
